FAERS Safety Report 16462490 (Version 2)
Quarter: 2019Q2

REPORT INFORMATION
  Report Type: Spontaneous
  Country: HK (occurrence: HK)
  Receive Date: 20190621
  Receipt Date: 20190627
  Transmission Date: 20190711
  Serious: Yes (Hospitalization, Other)
  Sender: FDA-Public Use
  Company Number: HK-SA-2019SA163000

PATIENT

DRUGS (1)
  1. SOLIQUA 100/33 [Suspect]
     Active Substance: INSULIN GLARGINE\LIXISENATIDE
     Dosage: UNK UNK, UNK
     Route: 065

REACTIONS (1)
  - Pancreatitis [Unknown]
